FAERS Safety Report 8062901-5 (Version None)
Quarter: 2012Q1

REPORT INFORMATION
  Report Type: 
  Country: None (occurrence: None)
  Receive Date: 20120123
  Receipt Date: 20120123
  Transmission Date: 20120608
  Serious: Yes (Other)
  Sender: FDA-Public Use
  Company Number: None

PATIENT
  Age: 26 Year
  Sex: Female
  Weight: 58.967 kg

DRUGS (2)
  1. RISPERIDONE [Suspect]
     Indication: HALLUCINATION, AUDITORY
     Dosage: 0.5 MG
     Route: 048
     Dates: start: 20120112, end: 20120120
  2. RISPERIDONE [Suspect]
     Indication: INSOMNIA
     Dosage: 0.5 MG
     Route: 048
     Dates: start: 20120112, end: 20120120

REACTIONS (45)
  - PRODUCT ODOUR ABNORMAL [None]
  - CONSTIPATION [None]
  - DIARRHOEA [None]
  - DYSPEPSIA [None]
  - HEART RATE INCREASED [None]
  - PYREXIA [None]
  - MIGRAINE [None]
  - ABDOMINAL PAIN UPPER [None]
  - NAUSEA [None]
  - CHILLS [None]
  - DISTURBANCE IN ATTENTION [None]
  - IMPAIRED DRIVING ABILITY [None]
  - THIRST [None]
  - CHEST DISCOMFORT [None]
  - HEART RATE DECREASED [None]
  - VOMITING [None]
  - INFLUENZA LIKE ILLNESS [None]
  - DIZZINESS [None]
  - RESTLESSNESS [None]
  - MUSCULAR WEAKNESS [None]
  - FATIGUE [None]
  - NASAL CONGESTION [None]
  - ABDOMINAL DISCOMFORT [None]
  - OROPHARYNGEAL PAIN [None]
  - AGITATION [None]
  - GAIT DISTURBANCE [None]
  - DYSPNOEA [None]
  - APPETITE DISORDER [None]
  - LOCAL SWELLING [None]
  - RHINORRHOEA [None]
  - DRY THROAT [None]
  - COUGH [None]
  - SOMNOLENCE [None]
  - PRODUCT QUALITY ISSUE [None]
  - ANXIETY [None]
  - PAIN [None]
  - HEART RATE IRREGULAR [None]
  - PANIC ATTACK [None]
  - VISUAL IMPAIRMENT [None]
  - TONGUE DISCOLOURATION [None]
  - HYPOPHAGIA [None]
  - INSOMNIA [None]
  - DYSPHAGIA [None]
  - DYSSTASIA [None]
  - DRY SKIN [None]
